FAERS Safety Report 8202607-2 (Version None)
Quarter: 2012Q1

REPORT INFORMATION
  Report Type: 
  Country: None (occurrence: None)
  Receive Date: 20120312
  Receipt Date: 20120306
  Transmission Date: 20120608
  Serious: Yes (Life-Threatening)
  Sender: FDA-Public Use
  Company Number: JP-ASTRAZENECA-2012SE05100

PATIENT
  Age: 67 Year
  Sex: Male
  Weight: 55 kg

DRUGS (8)
  1. FENTANYL [Concomitant]
     Indication: GENERAL ANAESTHESIA
     Route: 042
     Dates: start: 20120120, end: 20120120
  2. SEVOFLURANE [Concomitant]
     Indication: GENERAL ANAESTHESIA
     Route: 055
     Dates: start: 20120120, end: 20120120
  3. EPHEDRIN [Concomitant]
     Indication: PROCEDURAL HYPOTENSION
     Route: 042
     Dates: start: 20120120, end: 20120120
  4. SUGAMMADEX SODIUM [Suspect]
     Indication: GENERAL ANAESTHESIA
     Route: 042
     Dates: start: 20120120, end: 20120120
  5. PROPOFOL [Concomitant]
     Indication: GENERAL ANAESTHESIA
     Route: 042
     Dates: start: 20120120, end: 20120120
  6. ROPIVACAINE HYDROCHLORIDE [Suspect]
     Route: 053
     Dates: start: 20120120, end: 20120120
  7. ROCURONIUM BROMIDE [Concomitant]
     Indication: GENERAL ANAESTHESIA
     Route: 042
     Dates: start: 20120120, end: 20120120
  8. DECADRON [Concomitant]
     Indication: PROPHYLAXIS OF NAUSEA AND VOMITING
     Route: 042
     Dates: start: 20120120, end: 20120120

REACTIONS (2)
  - VENTRICULAR FLUTTER [None]
  - DRUG HYPERSENSITIVITY [None]
